FAERS Safety Report 9639315 (Version 1)
Quarter: 2013Q4

REPORT INFORMATION
  Report Type: Spontaneous
  Country: CH (occurrence: None)
  Receive Date: 20131010
  Receipt Date: 20131010
  Transmission Date: 20140711
  Serious: Yes (Hospitalization, Other)
  Sender: FDA-Public Use
  Company Number: 2013038229

PATIENT
  Age: 48 Year
  Sex: Female

DRUGS (4)
  1. PRIVIGEN [Suspect]
     Indication: ACUTE MYELOID LEUKAEMIA
     Dosage: PER 1 WEEK? (NOT OTHERWISE SPECIFIED)
     Route: 042
     Dates: start: 20130606
  2. REBETOL [Suspect]
     Indication: PNEUMONIA VIRAL
     Dosage: DURATION OF USE: CONTINUING
     Route: 048
  3. MEROPENEM (MEROPENEM) [Concomitant]
  4. LEVOFLOAXCIN (LEVOFLOAXCIN) [Concomitant]

REACTIONS (2)
  - Haemolytic anaemia [None]
  - Rash erythematous [None]
